FAERS Safety Report 7228725-3 (Version None)
Quarter: 2011Q1

REPORT INFORMATION
  Report Type: 
  Country: None (occurrence: None)
  Receive Date: 20110117
  Receipt Date: 20110106
  Transmission Date: 20110831
  Serious: No
  Sender: FDA-Public Use
  Company Number: US-BIOGENIDEC-2011BI001530

PATIENT
  Sex: Female

DRUGS (1)
  1. TYSABRI [Suspect]
     Indication: MULTIPLE SCLEROSIS
     Route: 042
     Dates: start: 20070313

REACTIONS (5)
  - MUSCULOSKELETAL STIFFNESS [None]
  - FATIGUE [None]
  - APHASIA [None]
  - OPTIC NEURITIS [None]
  - DIARRHOEA [None]
